FAERS Safety Report 18319231 (Version 2)
Quarter: 2021Q1

REPORT INFORMATION
  Report Type: Report from Study
  Country: JP (occurrence: JP)
  Receive Date: 20200928
  Receipt Date: 20210118
  Transmission Date: 20210419
  Serious: Yes (Other)
  Sender: FDA-Public Use
  Company Number: NVSJ2020JP009346

PATIENT

DRUGS (5)
  1. AFINITOR [Suspect]
     Active Substance: EVEROLIMUS
     Indication: TUBEROUS SCLEROSIS COMPLEX
     Dosage: START FROM 5 YEARS OLD
     Route: 048
  2. DIOVAN [Suspect]
     Active Substance: VALSARTAN
     Indication: HYPERTENSION
     Dosage: START FROM 6 YEARS OLD
     Route: 048
  3. LAMICTAL [Concomitant]
     Active Substance: LAMOTRIGINE
     Indication: PRODUCT USED FOR UNKNOWN INDICATION
     Dosage: UNK
     Route: 065
  4. AFINITOR [Suspect]
     Active Substance: EVEROLIMUS
     Indication: EPILEPSY
  5. AFINITOR [Suspect]
     Active Substance: EVEROLIMUS
     Indication: ASTROCYTOMA, LOW GRADE

REACTIONS (9)
  - Loss of consciousness [Recovered/Resolved]
  - Abdominal pain upper [Unknown]
  - Post procedural infection [Unknown]
  - Stomatitis [Recovering/Resolving]
  - Epilepsy [Recovered/Resolved]
  - Drug ineffective [Unknown]
  - Proteinuria [Unknown]
  - Cyanosis [Recovered/Resolved]
  - Hypertension [Recovering/Resolving]
